FAERS Safety Report 5850456-2 (Version None)
Quarter: 2008Q3

REPORT INFORMATION
  Report Type: 
  Country: None (occurrence: None)
  Receive Date: 20080819
  Receipt Date: 20080807
  Transmission Date: 20090109
  Serious: Yes (Other)
  Sender: FDA-Public Use
  Company Number: US-PFIZER INC-2008047359

PATIENT
  Sex: Female

DRUGS (7)
  1. CHANTIX [Suspect]
     Indication: SMOKING CESSATION THERAPY
  2. XANAX [Suspect]
     Indication: ANXIETY
  3. LUNESTA [Suspect]
  4. AMBIEN [Suspect]
  5. WELLBUTRIN [Concomitant]
     Indication: MAJOR DEPRESSION
  6. ALBUTEROL [Concomitant]
  7. NEXIUM [Concomitant]

REACTIONS (3)
  - DRUG SCREEN POSITIVE [None]
  - INTENTIONAL OVERDOSE [None]
  - SUICIDE ATTEMPT [None]
